FAERS Safety Report 6938851-1 (Version None)
Quarter: 2010Q3

REPORT INFORMATION
  Report Type: 
  Country: None (occurrence: None)
  Receive Date: 20100824
  Receipt Date: 20100816
  Transmission Date: 20110219
  Serious: Yes (Death, Other)
  Sender: FDA-Public Use
  Company Number: US-ROCHE-721587

PATIENT
  Age: 41 Year
  Sex: Male

DRUGS (13)
  1. GANCICLOVIR SODIUM [Suspect]
     Indication: PROPHYLAXIS AGAINST GRAFT VERSUS HOST DISEASE
     Dosage: FROM MONDAY TO FRIDAY;
     Route: 042
     Dates: start: 20080601, end: 20080901
  2. GANCICLOVIR SODIUM [Suspect]
     Route: 042
     Dates: start: 20081101, end: 20081101
  3. GANCICLOVIR SODIUM [Suspect]
     Dosage: FROM MONDAY THROUGH FRIDAY
     Route: 042
     Dates: start: 20081101, end: 20081201
  4. VALGANCICLOVIR [Suspect]
     Route: 048
     Dates: start: 20081101, end: 20081101
  5. MYCOPHENOLATE MOFETIL [Suspect]
     Indication: PROPHYLAXIS AGAINST GRAFT VERSUS HOST DISEASE
     Route: 065
     Dates: start: 20080501
  6. CYCLOSPORINE [Suspect]
     Indication: PROPHYLAXIS AGAINST GRAFT VERSUS HOST DISEASE
     Route: 065
     Dates: start: 20080501
  7. FOSCARNET [Suspect]
     Indication: CYTOMEGALOVIRUS INFECTION
     Route: 042
     Dates: start: 20081201, end: 20081201
  8. FOSCARNET [Suspect]
     Dosage: DOSAGE REDUCTION
     Route: 042
     Dates: start: 20081201, end: 20090101
  9. FOSCARNET [Suspect]
     Dosage: MAINTENANCE DOSAGE
     Route: 042
  10. PREDNISONE [Suspect]
     Indication: GRAFT VERSUS HOST DISEASE
     Route: 065
     Dates: start: 20080701
  11. PREDNISONE [Suspect]
     Route: 065
  12. FLUDARABINE [Concomitant]
     Dates: start: 20080501
  13. ANTI-THYMOCYTE GLOBULIN NOS [Concomitant]
     Dosage: OVER DAYS 3,2 AND 1 BEFORE TRANSPLANTATION
     Dates: start: 20080501

REACTIONS (5)
  - CYTOMEGALOVIRUS INFECTION [None]
  - ENCEPHALITIS CYTOMEGALOVIRUS [None]
  - GRAFT VERSUS HOST DISEASE [None]
  - NEPHROPATHY TOXIC [None]
  - RENAL FAILURE [None]
